FAERS Safety Report 6818859-7 (Version None)
Quarter: 2010Q3

REPORT INFORMATION
  Report Type: 
  Country: None (occurrence: None)
  Receive Date: 20100706
  Receipt Date: 20100630
  Transmission Date: 20110219
  Serious: Yes (Other)
  Sender: FDA-Public Use
  Company Number: JP-BRISTOL-MYERS SQUIBB COMPANY-15176472

PATIENT
  Age: 32 Year
  Sex: Male

DRUGS (3)
  1. VEPESID [Suspect]
     Indication: SEMINOMA
  2. RANDA [Suspect]
     Indication: SEMINOMA
  3. BLEO [Suspect]
     Indication: SEMINOMA

REACTIONS (2)
  - AZOOSPERMIA [None]
  - VARICOCELE [None]
